FAERS Safety Report 14799056 (Version 1)
Quarter: 2018Q2

REPORT INFORMATION
  Report Type: Spontaneous
  Country: DK (occurrence: DK)
  Receive Date: 20180424
  Receipt Date: 20180424
  Transmission Date: 20180711
  Serious: Yes (Hospitalization)
  Sender: FDA-Public Use
  Company Number: DK-AMGEN-DNKSP2018053245

PATIENT
  Age: 80 Year
  Sex: Male

DRUGS (10)
  1. XGEVA [Suspect]
     Active Substance: DENOSUMAB
     Indication: METASTASES TO BONE
     Dosage: 120 MG, Q4WK
     Route: 058
     Dates: start: 20140820, end: 201601
  2. CALCIA + VITAMIN D [Concomitant]
     Indication: SUPPLEMENTATION THERAPY
     Dosage: 1 DF (400 MG + 19 MICROGRAM), QD
     Route: 048
     Dates: start: 20130131
  3. BENDROFLUMETHIAZIDE W/POTASSIUM CHLORIDE [Concomitant]
     Indication: HYPERTENSION
     Dosage: 1 DF (2.5 + 573 MG), QD
     Route: 048
     Dates: start: 20150213
  4. XGEVA [Suspect]
     Active Substance: DENOSUMAB
     Dosage: 120 MG, Q4WK
     Route: 058
     Dates: start: 20160826, end: 20171218
  5. RIVAROXABAN [Concomitant]
     Active Substance: RIVAROXABAN
     Indication: THROMBOSIS PROPHYLAXIS
     Dosage: 20 MG, QD
     Route: 048
     Dates: start: 20160415
  6. CYANOCOBALAMIN. [Concomitant]
     Active Substance: CYANOCOBALAMIN
     Indication: VITAMIN B12 DEFICIENCY
     Dosage: 1 MG, QD
     Route: 048
     Dates: start: 20150728
  7. PARACETAMOL [Concomitant]
     Active Substance: ACETAMINOPHEN
     Indication: PAIN
     Dosage: 500 MG, AS NECESSARY (2 TABLETS AS NEEDED/ MAXIMUM 4 TIMES A DAY)
     Route: 048
     Dates: start: 20150819
  8. PREDNISOLONE. [Concomitant]
     Active Substance: PREDNISOLONE
     Indication: ADRENOCORTICAL STEROID THERAPY
     Dosage: 12.5 MG, QD
     Route: 048
     Dates: start: 20170410
  9. LOSARTAN. [Concomitant]
     Active Substance: LOSARTAN
     Indication: HYPERTENSION
     Dosage: 50 MG, QD
     Route: 048
     Dates: start: 20140627
  10. POTASSIUM CHLORIDE. [Concomitant]
     Active Substance: POTASSIUM CHLORIDE
     Indication: HYPOKALAEMIA
     Dosage: 750 MG, QD
     Route: 048
     Dates: start: 20150305

REACTIONS (2)
  - Sequestrectomy [Recovered/Resolved]
  - Osteonecrosis of jaw [Not Recovered/Not Resolved]

NARRATIVE: CASE EVENT DATE: 20171222
